FAERS Safety Report 5070791-8 (Version None)
Quarter: 2006Q3

REPORT INFORMATION
  Report Type: 
  Country: None (occurrence: None)
  Receive Date: 20060804
  Receipt Date: 20060411
  Transmission Date: 20061208
  Serious: No
  Sender: FDA-Public Use
  Company Number: US-GLAXOSMITHKLINE-A0601330A

PATIENT
  Age: 58 Year
  Sex: Female

DRUGS (5)
  1. NICORETTE [Suspect]
     Dates: start: 20060308
  2. INSULIN [Concomitant]
  3. METFORMIN [Concomitant]
  4. ACTOS [Concomitant]
  5. GLIPIZIDE [Concomitant]

REACTIONS (1)
  - BLOOD GLUCOSE INCREASED [None]
